FAERS Safety Report 5563218-0 (Version None)
Quarter: 2007Q4

REPORT INFORMATION
  Report Type: 
  Country: None (occurrence: None)
  Receive Date: 20071217
  Receipt Date: 20071207
  Transmission Date: 20080405
  Serious: Yes (Other)
  Sender: FDA-Public Use
  Company Number: BR-JNJFOC-20071202944

PATIENT
  Age: 34 Year
  Sex: Female
  Weight: 78 kg

DRUGS (3)
  1. HALDOL [Suspect]
     Indication: DEPRESSION
     Route: 048
  2. HYDROCHLOROTHIAZIDE [Concomitant]
     Indication: HYPERTENSION
     Route: 047
  3. DIAZEPAM [Concomitant]

REACTIONS (3)
  - ANXIETY [None]
  - MALAISE [None]
  - SUICIDAL IDEATION [None]
